FAERS Safety Report 17259621 (Version 1)
Quarter: 2019Q4

REPORT INFORMATION
  Report Type: Spontaneous
  Country: US (occurrence: US)
  Receive Date: 20191218
  Receipt Date: 20191218
  Transmission Date: 20200122
  Serious: No
  Sender: FDA-Public Use
  Company Number: None

PATIENT
  Age: 52 Year
  Sex: Male

DRUGS (1)
  1. HUMIRA [Suspect]
     Active Substance: ADALIMUMAB
     Indication: PSORIASIS
     Dosage: ?          OTHER DOSE:40MG/0.8ML PEN;?
     Route: 058
     Dates: start: 20180912, end: 20191120

REACTIONS (2)
  - Rash [None]
  - Skin disorder [None]

NARRATIVE: CASE EVENT DATE: 20191218
